FAERS Safety Report 16793526 (Version 1)
Quarter: 2019Q3

REPORT INFORMATION
  Report Type: Spontaneous
  Country: GB (occurrence: GB)
  Receive Date: 20190911
  Receipt Date: 20190911
  Transmission Date: 20191005
  Serious: Yes (Other)
  Sender: FDA-Public Use
  Company Number: GB-TEVA-2019-GB-1104111

PATIENT
  Age: 65 Year
  Sex: Female
  Weight: 64.86 kg

DRUGS (1)
  1. NITROFURANTOIN. [Suspect]
     Active Substance: NITROFURANTOIN
     Indication: UTERINE INFECTION
     Dosage: AT NIGHT 100 MG
     Route: 048
     Dates: end: 20190801

REACTIONS (3)
  - Pain in extremity [Recovered/Resolved]
  - Restlessness [Recovered/Resolved]
  - Insomnia [Recovered/Resolved]

NARRATIVE: CASE EVENT DATE: 20190801
